FAERS Safety Report 6323499-2 (Version None)
Quarter: 2009Q3

REPORT INFORMATION
  Report Type: 
  Country: None (occurrence: None)
  Receive Date: 20090824
  Receipt Date: 20090615
  Transmission Date: 20100115
  Serious: No
  Sender: FDA-Public Use
  Company Number: US-ABBOTT-09P-163-0579725-00

PATIENT
  Sex: Male
  Weight: 149.82 kg

DRUGS (13)
  1. NIASPAN [Suspect]
     Indication: DRUG USE FOR UNKNOWN INDICATION
     Dates: start: 20080101
  2. NIASPAN [Suspect]
     Dates: start: 20090501
  3. FLOMAX [Concomitant]
     Indication: DRUG USE FOR UNKNOWN INDICATION
  4. DETROL [Concomitant]
     Indication: DRUG USE FOR UNKNOWN INDICATION
  5. GABAPENTIN [Concomitant]
     Indication: DRUG USE FOR UNKNOWN INDICATION
  6. LISINOPRIL [Concomitant]
     Indication: DRUG USE FOR UNKNOWN INDICATION
  7. TRICOR [Concomitant]
     Indication: DRUG USE FOR UNKNOWN INDICATION
  8. TOPROL-XL [Concomitant]
     Indication: DRUG USE FOR UNKNOWN INDICATION
  9. CYMBALTA [Concomitant]
     Indication: DRUG USE FOR UNKNOWN INDICATION
  10. BUSPIRONE HCL [Concomitant]
     Indication: DRUG USE FOR UNKNOWN INDICATION
  11. METFORMIN HCL [Concomitant]
     Indication: DRUG USE FOR UNKNOWN INDICATION
  12. GLIPIZIDE [Concomitant]
     Indication: DRUG USE FOR UNKNOWN INDICATION
  13. CRESTOR [Concomitant]
     Indication: DRUG USE FOR UNKNOWN INDICATION

REACTIONS (1)
  - FLUSHING [None]
